FAERS Safety Report 22218406 (Version 1)
Quarter: 2023Q2

REPORT INFORMATION
  Report Type: Report from Study
  Country: IT (occurrence: IT)
  Receive Date: 20230417
  Receipt Date: 20230417
  Transmission Date: 20230721
  Serious: Yes (Death)
  Sender: FDA-Public Use
  Company Number: IT-Merck Healthcare KGaA-9261160

PATIENT
  Age: 71 Year
  Sex: Male
  Weight: 69 kg

DRUGS (6)
  1. HEPARIN SODIUM [Suspect]
     Active Substance: HEPARIN SODIUM
  2. TEPOTINIB [Suspect]
     Active Substance: TEPOTINIB
     Indication: Non-small cell lung cancer stage IV
     Dosage: 500 MG, 1X/DAY
     Dates: start: 20210604, end: 20210817
  3. HUMALOG [Concomitant]
     Active Substance: INSULIN LISPRO
     Indication: Diabetes mellitus
     Dosage: UNK
     Route: 058
     Dates: start: 2018
  4. FENTANYL [Concomitant]
     Active Substance: FENTANYL
     Indication: Tumour pain
     Dosage: 25 UG
     Route: 062
  5. ASCORBIC ACID\FERRIC PYROPHOSPHATE [Concomitant]
     Active Substance: ASCORBIC ACID\FERRIC PYROPHOSPHATE
     Indication: Anaemia
     Dosage: UNK
     Route: 048
     Dates: start: 20210625
  6. ENOXAPARIN SODIUM [Concomitant]
     Active Substance: ENOXAPARIN SODIUM
     Dosage: 4000 UL
     Route: 058
     Dates: start: 202101

REACTIONS (1)
  - Haemoptysis [Fatal]

NARRATIVE: CASE EVENT DATE: 20210818
